FAERS Safety Report 13372003 (Version 1)
Quarter: 2017Q1

REPORT INFORMATION
  Report Type: Spontaneous
  Country: FR (occurrence: FR)
  Receive Date: 20170326
  Receipt Date: 20170326
  Transmission Date: 20170429
  Serious: Yes (Hospitalization, Other)
  Sender: FDA-Public Use
  Company Number: FR-BAXTER-2017BAX011922

PATIENT
  Age: 61 Year
  Sex: Female

DRUGS (22)
  1. ONDANSETRON [Suspect]
     Active Substance: ONDANSETRON
     Indication: PREMEDICATION
     Dosage: C1D1
     Route: 065
     Dates: start: 20170202, end: 20170202
  2. UROMITEXAN 5 G/50 ML, SOLUTION INJECTABLE POUR PERFUSION EN FLACON [Suspect]
     Active Substance: MESNA
     Indication: PREMEDICATION
     Dosage: 2 G/M2  (C1D1)
     Route: 042
     Dates: start: 20170202, end: 20170202
  3. DOXORUBICIN [Suspect]
     Active Substance: DOXORUBICIN
     Indication: RHABDOMYOSARCOMA
     Dosage: (C1D1) ADMINISTERED AT A 20%-DECREASED DOSE OF 60 MG/M2 (88 MG)
     Route: 065
     Dates: start: 20170202, end: 20170202
  4. METHYLPREDNISOLONE. [Suspect]
     Active Substance: METHYLPREDNISOLONE
     Dosage: C1D2
     Route: 065
     Dates: start: 20170203, end: 20170203
  5. ALPRAZOLAM. [Suspect]
     Active Substance: ALPRAZOLAM
     Indication: PRODUCT USED FOR UNKNOWN INDICATION
     Dosage: (C1D2)
     Route: 065
     Dates: start: 20170203
  6. NICARDIPINE [Suspect]
     Active Substance: NICARDIPINE
     Indication: PRODUCT USED FOR UNKNOWN INDICATION
     Dosage: (C1D1)
     Route: 065
     Dates: start: 20170202
  7. UROMITEXAN 5 G/50 ML, SOLUTION INJECTABLE POUR PERFUSION EN FLACON [Suspect]
     Active Substance: MESNA
     Dosage: 2 G/M2
     Route: 042
     Dates: start: 20170205, end: 20170205
  8. HOLOXAN 2000 MG, POUDRE POUR USAGE PARENT?RAL [Suspect]
     Active Substance: IFOSFAMIDE
     Dosage: 2 G/M2 (C1D3)
     Route: 042
     Dates: start: 20170204, end: 20170204
  9. PREDNISOLONE. [Suspect]
     Active Substance: PREDNISOLONE
     Indication: PREMEDICATION
     Dosage: C1D3
     Route: 048
     Dates: start: 20170204, end: 20170204
  10. HOLOXAN 2000 MG, POUDRE POUR USAGE PARENT?RAL [Suspect]
     Active Substance: IFOSFAMIDE
     Indication: RHABDOMYOSARCOMA
     Dosage: 2 G/M2 (C1D1)
     Route: 042
     Dates: start: 20170202, end: 20170202
  11. HUMALOG [Concomitant]
     Active Substance: INSULIN LISPRO
     Indication: PRODUCT USED FOR UNKNOWN INDICATION
     Route: 065
  12. METOCLOPRAMIDE. [Suspect]
     Active Substance: METOCLOPRAMIDE
     Indication: PRODUCT USED FOR UNKNOWN INDICATION
     Route: 042
     Dates: start: 20170205
  13. UROMITEXAN 5 G/50 ML, SOLUTION INJECTABLE POUR PERFUSION EN FLACON [Suspect]
     Active Substance: MESNA
     Dosage: 2 G/M2  (C1D3)
     Route: 042
     Dates: start: 20170204, end: 20170204
  14. CIFLOX [Suspect]
     Active Substance: CIPROFLOXACIN
     Indication: INFECTION
     Dosage: SCORED COATED TABLET
     Route: 048
     Dates: start: 20170203, end: 20170207
  15. HOLOXAN 2000 MG, POUDRE POUR USAGE PARENT?RAL [Suspect]
     Active Substance: IFOSFAMIDE
     Dosage: 2 G/M2 (C1D2)
     Route: 042
     Dates: start: 20170203, end: 20170203
  16. PREDNISOLONE. [Suspect]
     Active Substance: PREDNISOLONE
     Route: 048
     Dates: start: 20170205, end: 20170205
  17. ONDANSETRON [Suspect]
     Active Substance: ONDANSETRON
     Dosage: C1D2
     Route: 065
     Dates: start: 20170203, end: 20170203
  18. SMOFKABIVEN [Suspect]
     Active Substance: UNSPECIFIED INGREDIENT
     Indication: PRODUCT USED FOR UNKNOWN INDICATION
     Dosage: (C1D1)
     Route: 065
     Dates: start: 20170202
  19. UROMITEXAN 5 G/50 ML, SOLUTION INJECTABLE POUR PERFUSION EN FLACON [Suspect]
     Active Substance: MESNA
     Dosage: 2 G/M2  (C1D2)
     Route: 042
     Dates: start: 20170203, end: 20170203
  20. METHYLPREDNISOLONE. [Suspect]
     Active Substance: METHYLPREDNISOLONE
     Indication: PREMEDICATION
     Dosage: C1D1
     Route: 065
     Dates: start: 20170202, end: 20170202
  21. LEVEMIR [Suspect]
     Active Substance: INSULIN DETEMIR
     Indication: PRODUCT USED FOR UNKNOWN INDICATION
     Dosage: (C1D2)
     Route: 065
     Dates: start: 20170203
  22. FUROSEMIDE. [Suspect]
     Active Substance: FUROSEMIDE
     Indication: PRODUCT USED FOR UNKNOWN INDICATION
     Dosage: (C1D2)
     Route: 065
     Dates: start: 20170203

REACTIONS (2)
  - Renal failure [Recovering/Resolving]
  - Encephalopathy [Recovered/Resolved]

NARRATIVE: CASE EVENT DATE: 20170205
